FAERS Safety Report 7781547-7 (Version None)
Quarter: 2011Q3

REPORT INFORMATION
  Report Type: 
  Country: None (occurrence: None)
  Receive Date: 20110927
  Receipt Date: 20110926
  Transmission Date: 20111222
  Serious: Yes (Hospitalization, Other)
  Sender: FDA-Public Use
  Company Number: BR-BAYER-201043663GPV

PATIENT
  Age: 65 Year
  Sex: Male

DRUGS (3)
  1. THIENOPYRIDINE [Interacting]
     Indication: ACUTE CORONARY SYNDROME
     Route: 048
  2. RIVAROXABAN [Interacting]
     Indication: ACUTE CORONARY SYNDROME
     Dosage: 2.5 MG, BID
     Route: 048
     Dates: start: 20101007, end: 20101012
  3. ASPIRIN [Suspect]
     Indication: ACUTE CORONARY SYNDROME

REACTIONS (1)
  - VASCULAR PSEUDOANEURYSM [None]
